FAERS Safety Report 23284245 (Version 1)
Quarter: 2023Q4

REPORT INFORMATION
  Report Type: Spontaneous
  Country: FR (occurrence: FR)
  Receive Date: 20231211
  Receipt Date: 20231211
  Transmission Date: 20240110
  Serious: Yes (Hospitalization, Other)
  Sender: FDA-Public Use
  Company Number: None

PATIENT
  Age: 67 Year
  Sex: Female
  Weight: 50 kg

DRUGS (3)
  1. OPDIVO [Suspect]
     Active Substance: NIVOLUMAB
     Indication: Renal cancer
     Dates: start: 20200409, end: 20200604
  2. OPDIVO [Suspect]
     Active Substance: NIVOLUMAB
     Dates: start: 20200710, end: 20201224
  3. OPDIVO [Suspect]
     Active Substance: NIVOLUMAB
     Dates: start: 20210107, end: 20210930

REACTIONS (6)
  - Skin ulcer [Not Recovered/Not Resolved]
  - Scleroderma [Not Recovered/Not Resolved]
  - Dysaesthesia [Not Recovered/Not Resolved]
  - Eosinophilic fasciitis [Not Recovered/Not Resolved]
  - Myalgia [Not Recovered/Not Resolved]
  - Prescribed underdose [Unknown]

NARRATIVE: CASE EVENT DATE: 20211004
